FAERS Safety Report 9208261 (Version 1)
Quarter: 2013Q2

REPORT INFORMATION
  Report Type: Spontaneous
  Country: US (occurrence: US)
  Receive Date: 20130403
  Receipt Date: 20130403
  Transmission Date: 20140414
  Serious: No
  Sender: FDA-Public Use
  Company Number: US-009507513-1304USA000237

PATIENT
  Age: 30 Year
  Sex: Female
  Weight: 84.35 kg

DRUGS (2)
  1. IMPLANON [Suspect]
     Dosage: UNK DF, UNK
     Dates: start: 20130315, end: 20130315
  2. IMPLANON [Suspect]
     Dosage: 1 DF, UNK
     Route: 023
     Dates: start: 20130315

REACTIONS (2)
  - Device difficult to use [Unknown]
  - No adverse event [Unknown]
